FAERS Safety Report 16689117 (Version 1)
Quarter: 2019Q3

REPORT INFORMATION
  Report Type: Report from Study
  Country: US (occurrence: US)
  Receive Date: 20190809
  Receipt Date: 20190809
  Transmission Date: 20191004
  Serious: Yes (Other)
  Sender: FDA-Public Use
  Company Number: US-BIOGEN-2019BI00771336

PATIENT
  Sex: Male

DRUGS (2)
  1. TECFIDERA [Suspect]
     Active Substance: DIMETHYL FUMARATE
     Indication: MULTIPLE SCLEROSIS
     Dosage: STARTING DOSE
     Route: 048
  2. TECFIDERA [Suspect]
     Active Substance: DIMETHYL FUMARATE
     Dosage: MAINTENANCE DOSE
     Route: 048

REACTIONS (15)
  - Sleep apnoea syndrome [Not Recovered/Not Resolved]
  - Haematocrit decreased [Unknown]
  - Blood iron decreased [Recovered/Resolved]
  - Haemoglobin decreased [Unknown]
  - Crohn^s disease [Not Recovered/Not Resolved]
  - Gastrooesophageal reflux disease [Recovered/Resolved]
  - Fine motor skill dysfunction [Not Recovered/Not Resolved]
  - Nephrolithiasis [Unknown]
  - Serum ferritin decreased [Recovered/Resolved]
  - Vertigo [Not Recovered/Not Resolved]
  - Retinitis [Recovered/Resolved]
  - Colitis ulcerative [Not Recovered/Not Resolved]
  - Feeding disorder [Not Recovered/Not Resolved]
  - Speech disorder [Not Recovered/Not Resolved]
  - Fatigue [Not Recovered/Not Resolved]
